FAERS Safety Report 11884996 (Version 2)
Quarter: 2016Q1

REPORT INFORMATION
  Report Type: Spontaneous
  Country: US (occurrence: US)
  Receive Date: 20160104
  Receipt Date: 20160115
  Transmission Date: 20160526
  Serious: Yes (Death, Hospitalization)
  Sender: FDA-Public Use
  Company Number: US-UNITED THERAPEUTICS-UNT-2015-015551

PATIENT
  Age: 49 Year
  Sex: Male
  Weight: 88.89 kg

DRUGS (5)
  1. REMODULIN [Suspect]
     Active Substance: TREPROSTINIL
     Indication: PULMONARY HYPERTENSION
     Dosage: 0.00125 ?G/KG, CONTINUING
     Route: 058
     Dates: start: 20151123
  2. REMODULIN [Suspect]
     Active Substance: TREPROSTINIL
     Dosage: 0.01125 ?G/KG, CONTINUING
     Route: 058
  3. TRACLEER [Concomitant]
     Active Substance: BOSENTAN
     Indication: PRODUCT USED FOR UNKNOWN INDICATION
  4. SILDENAFIL. [Concomitant]
     Active Substance: SILDENAFIL
     Indication: PRODUCT USED FOR UNKNOWN INDICATION
  5. REMODULIN [Suspect]
     Active Substance: TREPROSTINIL
     Dosage: 0.00625 ?G/KG, CONTINUING
     Route: 058

REACTIONS (10)
  - Death [Fatal]
  - Somnolence [Unknown]
  - Infusion site oedema [Unknown]
  - Peptic ulcer [Unknown]
  - Dyspnoea [Unknown]
  - Infusion site pain [Unknown]
  - Vomiting [Unknown]
  - Haemorrhage [Unknown]
  - Diarrhoea [Unknown]
  - Flatulence [Unknown]

NARRATIVE: CASE EVENT DATE: 201512
